FAERS Safety Report 8231519-3 (Version None)
Quarter: 2012Q1

REPORT INFORMATION
  Report Type: 
  Country: None (occurrence: None)
  Receive Date: 20120323
  Receipt Date: 20120316
  Transmission Date: 20120608
  Serious: Yes (Death, Other)
  Sender: FDA-Public Use
  Company Number: PHHY2011JP95240

PATIENT
  Sex: Female
  Weight: 39 kg

DRUGS (28)
  1. NEORAL [Suspect]
     Dosage: 150 MG, UNK
     Route: 048
     Dates: start: 20071212, end: 20071213
  2. NEORAL [Suspect]
     Dosage: 200 MG, UNK
     Route: 048
     Dates: start: 20071213, end: 20071214
  3. MYCOPHENOLATE MOFETIL (CELLCEPT) [Concomitant]
     Dosage: 1000 MG, UNK
     Route: 048
  4. MYCOPHENOLATE MOFETIL (CELLCEPT) [Concomitant]
     Dosage: 250 MG, UNK
     Route: 048
  5. SOLU-MEDROL [Concomitant]
     Dosage: 50 MG, UNK
     Route: 042
  6. SERTRALINE HYDROCHLORIDE [Concomitant]
     Dosage: 100 MG, UNK
     Route: 048
  7. ADRENAL HORMONE PREPARATION [Suspect]
  8. MYCOPHENOLATE MOFETIL (CELLCEPT) [Concomitant]
     Dosage: 750 MG, UNK
     Route: 048
     Dates: start: 20071127
  9. SOLU-MEDROL [Concomitant]
     Dosage: 30 MG, UNK
     Route: 042
     Dates: end: 20080118
  10. PAROXETINE HCL [Concomitant]
     Indication: CONVULSION
     Dosage: 20 MG, UNK
     Route: 048
     Dates: start: 20080728, end: 20081016
  11. EXJADE [Concomitant]
     Dosage: 1000 MG, UNK
     Route: 048
     Dates: start: 20080620, end: 20081227
  12. AMITRIPTYLINE HCL [Concomitant]
     Indication: DEPRESSION SUICIDAL
     Dosage: 30 MG, UNK
     Route: 048
     Dates: start: 20080313, end: 20080402
  13. NEORAL [Suspect]
     Dosage: 100 MG, UNK
     Route: 048
     Dates: start: 20080110, end: 20080111
  14. PROGRAF [Concomitant]
     Dosage: 2.5 MG, UNK
     Route: 042
     Dates: start: 20071115, end: 20071119
  15. SERTRALINE HYDROCHLORIDE [Concomitant]
     Dosage: 50 MG, UNK
     Route: 048
     Dates: end: 20081104
  16. NEORAL [Suspect]
     Indication: GRAFT VERSUS HOST DISEASE
     Dosage: 75 MG, UNK
     Route: 048
     Dates: start: 20071212
  17. NEORAL [Suspect]
     Dosage: 150 MG, UNK
     Route: 048
     Dates: start: 20071214, end: 20080109
  18. NEORAL [Suspect]
     Dates: end: 20080119
  19. DESFERAL [Concomitant]
     Indication: HAEMOCHROMATOSIS
     Dosage: 1000 MG, UNK
     Route: 030
     Dates: start: 20080321, end: 20080619
  20. MYCOPHENOLATE MOFETIL (CELLCEPT) [Concomitant]
     Dosage: 500 MG, UNK
     Route: 048
  21. SOLU-MEDROL [Concomitant]
     Dosage: 40 MG, UNK
     Route: 042
  22. SOLU-MEDROL [Concomitant]
     Dosage: 75 MG, UNK
     Route: 042
     Dates: start: 20071115
  23. SANDIMMUNE INJECTION [Concomitant]
     Dosage: 250 MG, UNK
     Route: 042
     Dates: start: 20071125, end: 20071213
  24. MYCOPHENOLATE MOFETIL (CELLCEPT) [Concomitant]
     Dosage: 500 MG, UNK
     Route: 048
     Dates: end: 20080424
  25. SERTRALINE HYDROCHLORIDE [Concomitant]
     Dosage: 50 MG, UNK
     Route: 048
     Dates: start: 20080519
  26. LEVOMEPROMAZINE MALEATE [Concomitant]
     Dosage: 5 MG, UNK
     Route: 048
     Dates: start: 20080630
  27. MYCOPHENOLATE MOFETIL (CELLCEPT) [Concomitant]
     Dosage: 1250 MG, UNK
     Route: 048
  28. PREDNISOLONE [Concomitant]
     Dosage: 25 MG, UNK
     Route: 042
     Dates: start: 20080119

REACTIONS (30)
  - RENAL DISORDER [None]
  - NEUROTOXICITY [None]
  - HYPERAMMONAEMIA [None]
  - LUNG INFECTION PSEUDOMONAL [None]
  - HYPERTHERMIA [None]
  - PSYCHIATRIC SYMPTOM [None]
  - TOXIC ENCEPHALOPATHY [None]
  - FACIAL PARESIS [None]
  - HEPATIC FUNCTION ABNORMAL [None]
  - BONE MARROW FAILURE [None]
  - INSOMNIA [None]
  - SEDATION [None]
  - SKIN ULCER [None]
  - ABDOMINAL PAIN UPPER [None]
  - SUICIDAL IDEATION [None]
  - PAIN [None]
  - HAEMOCHROMATOSIS [None]
  - ANXIETY [None]
  - DEPRESSED LEVEL OF CONSCIOUSNESS [None]
  - CONVULSION [None]
  - HUMAN HERPESVIRUS 6 INFECTION [None]
  - FATIGUE [None]
  - LIVER DISORDER [None]
  - CEREBRAL ATROPHY [None]
  - FALL [None]
  - MENTAL STATUS CHANGES [None]
  - TOXICITY TO VARIOUS AGENTS [None]
  - BLOOD PRESSURE DECREASED [None]
  - PNEUMOCYSTIS JIROVECI PNEUMONIA [None]
  - LOSS OF CONSCIOUSNESS [None]
